FAERS Safety Report 6249614-7 (Version None)
Quarter: 2009Q2

REPORT INFORMATION
  Report Type: 
  Country: None (occurrence: None)
  Receive Date: 20090629
  Receipt Date: 20090625
  Transmission Date: 20091009
  Serious: Yes (Other)
  Sender: FDA-Public Use
  Company Number: US-ELI_LILLY_AND_COMPANY-US200906006243

PATIENT
  Sex: Male

DRUGS (3)
  1. HUMULIN R [Suspect]
     Indication: TYPE 1 DIABETES MELLITUS
     Dates: start: 19890101
  2. HUMULIN N [Suspect]
     Indication: TYPE 1 DIABETES MELLITUS
     Dates: start: 19890101
  3. LASIX [Concomitant]
     Indication: FLUID RETENTION

REACTIONS (4)
  - BLINDNESS [None]
  - COUGH [None]
  - FLUID RETENTION [None]
  - GAIT DISTURBANCE [None]
